FAERS Safety Report 7885843-4 (Version None)
Quarter: 2011Q4

REPORT INFORMATION
  Report Type: 
  Country: None (occurrence: None)
  Receive Date: 20111102
  Receipt Date: 20110627
  Transmission Date: 20120403
  Serious: No
  Sender: FDA-Public Use
  Company Number: US-AMGEN-USASP2011032930

PATIENT
  Age: 26 Year
  Sex: Male

DRUGS (1)
  1. ENBREL [Suspect]
     Indication: ANKYLOSING SPONDYLITIS
     Dosage: 50 MG, QWK
     Dates: start: 20110513, end: 20110605

REACTIONS (4)
  - PRODUCTIVE COUGH [None]
  - RHINORRHOEA [None]
  - SINUSITIS [None]
  - SPUTUM DISCOLOURED [None]
